FAERS Safety Report 11433002 (Version 1)
Quarter: 2015Q3

REPORT INFORMATION
  Report Type: Report from Study
  Country: BR (occurrence: BR)
  Receive Date: 20150829
  Receipt Date: 20150829
  Transmission Date: 20151125
  Serious: Yes (Other)
  Sender: FDA-Public Use
  Company Number: BR-ABBVIE-15K-020-1451552-00

PATIENT
  Age: 64 Year
  Sex: Female

DRUGS (1)
  1. HUMIRA [Suspect]
     Active Substance: ADALIMUMAB
     Indication: RHEUMATOID ARTHRITIS
     Route: 058

REACTIONS (3)
  - Cough [Recovering/Resolving]
  - Drug ineffective [Recovering/Resolving]
  - Foot deformity [Recovering/Resolving]

NARRATIVE: CASE EVENT DATE: 201504
